FAERS Safety Report 15227557 (Version 4)
Quarter: 2018Q4

REPORT INFORMATION
  Report Type: Report from Study
  Country: US (occurrence: US)
  Receive Date: 20180801
  Receipt Date: 20181110
  Transmission Date: 20190204
  Serious: Yes (Death, Life-Threatening, Hospitalization, Other)
  Sender: FDA-Public Use
  Company Number: US-BRISTOL-MYERS SQUIBB COMPANY-BMS-2018-071329

PATIENT
  Age: 56 Year
  Sex: Female
  Weight: 64.2 kg

DRUGS (28)
  1. DILTIAZEM. [Concomitant]
     Active Substance: DILTIAZEM
     Indication: ATRIAL FIBRILLATION
     Dosage: 20 MG, ONE TIME DOSE
     Route: 042
     Dates: start: 20180608, end: 20180608
  2. LEVOTHYROXINE SODIUM. [Concomitant]
     Active Substance: LEVOTHYROXINE SODIUM
     Indication: HYPOTHYROIDISM
     Dosage: 88 ?G, UNK
     Route: 048
     Dates: start: 201801, end: 20180416
  3. PREDNISONE. [Concomitant]
     Active Substance: PREDNISONE
     Indication: PRODUCT USED FOR UNKNOWN INDICATION
     Dosage: 50 MG, QD
     Route: 048
     Dates: start: 20180507, end: 20180509
  4. PREDNISONE. [Concomitant]
     Active Substance: PREDNISONE
     Indication: PRODUCT USED FOR UNKNOWN INDICATION
     Dosage: 40 MG, QD
     Route: 048
     Dates: start: 20180514, end: 20180517
  5. PREDNISONE. [Concomitant]
     Active Substance: PREDNISONE
     Indication: PRODUCT USED FOR UNKNOWN INDICATION
     Dosage: 30 MG, QD
     Route: 048
     Dates: start: 20180518, end: 20180521
  6. NIVOLUMAB [Suspect]
     Active Substance: NIVOLUMAB
     Indication: SMALL CELL LUNG CANCER
     Dosage: 360 MG, Q3WK
     Route: 042
     Dates: start: 20180305, end: 20180328
  7. NIVOLUMAB [Suspect]
     Active Substance: NIVOLUMAB
     Indication: PRODUCT USED FOR UNKNOWN INDICATION
     Dosage: 480 MG, Q4WK
     Route: 042
     Dates: start: 20180416, end: 20180525
  8. ROVALPITUZUMAB TESIRINE [Suspect]
     Active Substance: ROVALPITUZUMAB TESIRINE
     Indication: SMALL CELL LUNG CANCER
     Dosage: 0.3 MG/KG, Q6WK
     Route: 042
     Dates: start: 20180214, end: 20180214
  9. LASIX [Concomitant]
     Active Substance: FUROSEMIDE
     Indication: FACE OEDEMA
     Dosage: 40 MG, QD
     Route: 048
     Dates: start: 20180425
  10. ALBUMIN [Concomitant]
     Active Substance: ALBUMIN HUMAN
     Indication: GENERALISED OEDEMA
     Dosage: 25 G, QD
     Route: 042
     Dates: start: 20180508, end: 20180508
  11. DEXAMETHASONE. [Concomitant]
     Active Substance: DEXAMETHASONE
     Indication: PRODUCT USED FOR UNKNOWN INDICATION
     Dosage: 8 MG, BID (DAYS 1 AND 2 OF EACH CYCLE)
     Route: 048
     Dates: start: 20180327, end: 20180329
  12. PREDNISONE. [Concomitant]
     Active Substance: PREDNISONE
     Indication: PRODUCT USED FOR UNKNOWN INDICATION
     Dosage: 50 MG, QD
     Route: 048
     Dates: start: 20180510, end: 20180513
  13. MAGNESIUM [Concomitant]
     Active Substance: MAGNESIUM
     Indication: HYPOMAGNESAEMIA
     Dosage: 500 MG, QD
     Route: 048
     Dates: start: 20180426
  14. PREDNISONE. [Concomitant]
     Active Substance: PREDNISONE
     Indication: GENERALISED OEDEMA
     Dosage: 20 MG, QD
     Route: 048
     Dates: start: 20180425, end: 20180428
  15. PREDNISONE. [Concomitant]
     Active Substance: PREDNISONE
     Indication: PRODUCT USED FOR UNKNOWN INDICATION
     Dosage: 60 MG, QD
     Route: 048
     Dates: start: 20180522
  16. MEMANTINE HCL [Concomitant]
     Active Substance: MEMANTINE
     Indication: AMNESIA
     Dosage: 10 MG, QD
     Route: 048
     Dates: start: 201703
  17. SPIRIVA [Concomitant]
     Active Substance: TIOTROPIUM BROMIDE MONOHYDRATE
     Indication: CHRONIC OBSTRUCTIVE PULMONARY DISEASE
     Dosage: 18 ?G, BID
     Route: 055
     Dates: start: 20180424
  18. TRESIBA [Concomitant]
     Active Substance: INSULIN DEGLUDEC
     Indication: HYPERGLYCAEMIA
     Dosage: 1 DF=100UNITS/ML, QD
     Route: 058
     Dates: start: 20180513
  19. DILTIAZEM. [Concomitant]
     Active Substance: DILTIAZEM
     Indication: PRODUCT USED FOR UNKNOWN INDICATION
     Dosage: 30 MG, QD
     Route: 042
     Dates: start: 20180611, end: 20180614
  20. DEXAMETHASONE. [Concomitant]
     Active Substance: DEXAMETHASONE
     Indication: PREMEDICATION
     Dosage: 8 MG, BID (DAYS 1 AND 2 OF EACH CYCLE)
     Route: 048
     Dates: start: 20180213, end: 20180215
  21. POTASSIUM CHLORIDE. [Concomitant]
     Active Substance: POTASSIUM CHLORIDE
     Indication: HYPOKALAEMIA
     Dosage: 10 MEQ, QD
     Route: 048
     Dates: start: 2018
  22. ROVALPITUZUMAB TESIRINE [Suspect]
     Active Substance: ROVALPITUZUMAB TESIRINE
     Indication: PRODUCT USED FOR UNKNOWN INDICATION
     Dosage: 0.3 MG/KG, Q6WK
     Route: 042
     Dates: start: 20180328, end: 20180328
  23. LEVOTHYROXINE SODIUM. [Concomitant]
     Active Substance: LEVOTHYROXINE SODIUM
     Indication: PRODUCT USED FOR UNKNOWN INDICATION
     Dosage: 200 ?G, QD
     Route: 048
     Dates: start: 20180426
  24. ALBUMIN [Concomitant]
     Active Substance: ALBUMIN HUMAN
     Indication: PRODUCT USED FOR UNKNOWN INDICATION
     Dosage: 12.5 G, QD
     Route: 042
     Dates: start: 20180514, end: 20180514
  25. ZOLOFT [Concomitant]
     Active Substance: SERTRALINE HYDROCHLORIDE
     Indication: DEPRESSION
     Dosage: 50 MG, QD
     Route: 048
     Dates: start: 2008
  26. LEVOTHYROXINE SODIUM. [Concomitant]
     Active Substance: LEVOTHYROXINE SODIUM
     Indication: PRODUCT USED FOR UNKNOWN INDICATION
     Dosage: 100 ?G, QD
     Route: 042
     Dates: start: 201802, end: 20180422
  27. PREDNISONE. [Concomitant]
     Active Substance: PREDNISONE
     Indication: DYSPNOEA
     Dosage: 60 MG, QD
     Route: 048
     Dates: start: 20180424, end: 20180425
  28. INSULIN LISPRO [Concomitant]
     Active Substance: INSULIN LISPRO
     Indication: HYPERGLYCAEMIA
     Dosage: 1 DF=100UNITS/ML, QD
     Route: 058
     Dates: start: 20180513

REACTIONS (6)
  - Sepsis [Unknown]
  - Hypotension [Unknown]
  - Generalised oedema [Unknown]
  - Atrial fibrillation [Unknown]
  - Cardiac arrest [Fatal]
  - Acute kidney injury [Unknown]

NARRATIVE: CASE EVENT DATE: 20180723
